FAERS Safety Report 9499786 (Version 2)
Quarter: 2013Q4

REPORT INFORMATION
  Report Type: Report from Study
  Country: CA (occurrence: CA)
  Receive Date: 20130905
  Receipt Date: 20131015
  Transmission Date: 20140711
  Serious: Yes (Other)
  Sender: FDA-Public Use
  Company Number: CA-JNJFOC-20130817355

PATIENT
  Age: 31 Year
  Sex: Female
  Weight: 85.3 kg

DRUGS (7)
  1. REMICADE [Suspect]
     Indication: CROHN^S DISEASE
     Route: 042
     Dates: start: 20110819
  2. FOLIC ACID [Concomitant]
     Route: 065
  3. ADVAIR [Concomitant]
     Route: 065
  4. METHOTREXATE [Concomitant]
     Route: 058
  5. METHOTREXATE [Concomitant]
     Dosage: PER ORAL
     Route: 058
  6. SUMATRIPTAN [Concomitant]
     Route: 065
  7. CITALOPRAM [Concomitant]
     Route: 065

REACTIONS (3)
  - Fistula [Recovering/Resolving]
  - Crohn^s disease [Not Recovered/Not Resolved]
  - Oral herpes [Not Recovered/Not Resolved]
